FAERS Safety Report 20196097 (Version 1)
Quarter: 2021Q4

REPORT INFORMATION
  Report Type: Spontaneous
  Country: CH (occurrence: CH)
  Receive Date: 20211216
  Receipt Date: 20211216
  Transmission Date: 20220303
  Serious: Yes (Hospitalization, Other)
  Sender: FDA-Public Use
  Company Number: None

PATIENT
  Age: 45 Year
  Sex: Male

DRUGS (35)
  1. MEROPENEM [Suspect]
     Active Substance: MEROPENEM
     Indication: Anti-infective therapy
     Dosage: UNK
     Dates: start: 20211109, end: 20211110
  2. MEROPENEM [Suspect]
     Active Substance: MEROPENEM
     Dosage: UNK
     Dates: start: 20211117
  3. PIPERACILLIN SODIUM\TAZOBACTAM SODIUM [Suspect]
     Active Substance: PIPERACILLIN SODIUM\TAZOBACTAM SODIUM
     Dosage: UNK
     Dates: start: 20211102, end: 20211109
  4. CLINDAMYCIN PHOSPHATE [Suspect]
     Active Substance: CLINDAMYCIN PHOSPHATE
     Dosage: 6H
     Route: 042
     Dates: start: 20211110, end: 20211124
  5. NEXIUM I.V. [Suspect]
     Active Substance: ESOMEPRAZOLE SODIUM
     Dosage: UNK
     Route: 042
     Dates: start: 20211029
  6. CEFEPIME [Suspect]
     Active Substance: CEFEPIME HYDROCHLORIDE
     Dosage: UNK
     Dates: start: 20211110, end: 20211115
  7. ACTEMRA [Suspect]
     Active Substance: TOCILIZUMAB
     Dosage: 800 MG, 1X/DAY
     Dates: start: 20211028, end: 20211029
  8. ADDAMEL [CHROMIC CHLORIDE HEXAHYDRATE;COPPER CHLORIDE DIHYDRATE;FERRIC [Concomitant]
     Dosage: UNK
     Dates: start: 20211028, end: 20211105
  9. AMIKACIN [Concomitant]
     Active Substance: AMIKACIN
     Dosage: UNK
     Dates: start: 20211109, end: 20211109
  10. CERNEVIT [Concomitant]
     Active Substance: VITAMINS
     Dosage: UNK
     Dates: start: 20211028, end: 20211105
  11. FENTANYL [Concomitant]
     Active Substance: FENTANYL
     Dosage: UNK
     Dates: start: 20211028
  12. HEPARIN [Concomitant]
     Active Substance: HEPARIN SODIUM
     Dosage: UNK
     Dates: start: 20211028
  13. KETAMINE [Concomitant]
     Active Substance: KETAMINE
     Dosage: UNK
     Dates: start: 20211102, end: 20211102
  14. SODIUM PICOSULFATE [Concomitant]
     Active Substance: SODIUM PICOSULFATE
     Dosage: UNK
     Dates: start: 20211030, end: 20211102
  15. SODIUM PICOSULFATE [Concomitant]
     Active Substance: SODIUM PICOSULFATE
     Dosage: UNK
     Dates: start: 20211107, end: 20211116
  16. DEXAMETHASONE [Concomitant]
     Active Substance: DEXAMETHASONE
     Dosage: UNK
     Dates: start: 20211029, end: 20211103
  17. DEXAMETHASONE [Concomitant]
     Active Substance: DEXAMETHASONE
     Dosage: UNK
     Dates: start: 20211104, end: 20211105
  18. DEXAMETHASONE [Concomitant]
     Active Substance: DEXAMETHASONE
     Dosage: UNK
     Dates: start: 20211107, end: 20211116
  19. NOREPINEPHRINE [Concomitant]
     Active Substance: NOREPINEPHRINE
     Dosage: UNK
     Dates: start: 20211028, end: 20211101
  20. NOREPINEPHRINE [Concomitant]
     Active Substance: NOREPINEPHRINE
     Dosage: UNK
     Dates: start: 20211108, end: 20211116
  21. MIDAZOLAM [Concomitant]
     Active Substance: MIDAZOLAM
     Dosage: UNK
     Dates: start: 20211029
  22. POLYETHYLENE GLYCOLS [Concomitant]
     Active Substance: POLYETHYLENE GLYCOLS
     Dosage: UNK
     Dates: start: 20211029
  23. METOCLOPRAMIDE [Concomitant]
     Active Substance: METOCLOPRAMIDE
     Dosage: UNK
     Dates: start: 20211103, end: 20211106
  24. PHENYLEPHRINE [Concomitant]
     Active Substance: PHENYLEPHRINE HYDROCHLORIDE
     Dosage: UNK
     Dates: start: 20211107, end: 20211107
  25. PROPOFOL [Concomitant]
     Active Substance: PROPOFOL
     Dosage: UNK
     Dates: start: 20211028, end: 20211028
  26. PROPOFOL [Concomitant]
     Active Substance: PROPOFOL
     Dosage: UNK
     Dates: start: 20211030, end: 20211114
  27. PROPOFOL [Concomitant]
     Active Substance: PROPOFOL
     Dosage: UNK
     Dates: start: 20211117
  28. METHYLNALTREXONE [Concomitant]
     Active Substance: METHYLNALTREXONE
     Dosage: UNK
     Dates: start: 20211101, end: 20211101
  29. METHYLNALTREXONE [Concomitant]
     Active Substance: METHYLNALTREXONE
     Dosage: UNK
     Dates: start: 20211108, end: 20211108
  30. ROCURONIUM [Concomitant]
     Active Substance: ROCURONIUM BROMIDE
     Dosage: UNK
     Dates: start: 20211107, end: 20211108
  31. ATRACURIUM [Concomitant]
     Active Substance: ATRACURIUM
     Dosage: UNK
     Dates: start: 20211028, end: 20211029
  32. ATRACURIUM [Concomitant]
     Active Substance: ATRACURIUM
     Dosage: UNK
     Dates: start: 20211031, end: 20211102
  33. ATRACURIUM [Concomitant]
     Active Substance: ATRACURIUM
     Dosage: UNK
     Dates: start: 20211114, end: 20211116
  34. TRANEXAMIC ACID [Concomitant]
     Active Substance: TRANEXAMIC ACID
     Dosage: UNK
     Dates: start: 20211114, end: 20211114
  35. CEFAZOLIN [Concomitant]
     Active Substance: CEFAZOLIN
     Dosage: UNK
     Dates: start: 20211115, end: 20211117

REACTIONS (3)
  - Dermatitis bullous [Not Recovered/Not Resolved]
  - Toxic epidermal necrolysis [Not Recovered/Not Resolved]
  - Candida infection [Unknown]

NARRATIVE: CASE EVENT DATE: 20211114
